FAERS Safety Report 6025870-5 (Version None)
Quarter: 2008Q4

REPORT INFORMATION
  Report Type: 
  Country: None (occurrence: None)
  Receive Date: 20081229
  Receipt Date: 20081216
  Transmission Date: 20090506
  Serious: Yes (Other)
  Sender: FDA-Public Use
  Company Number: JPI-P-002285

PATIENT
  Age: 43 Year
  Sex: Female
  Weight: 63.5036 kg

DRUGS (6)
  1. XYREM [Suspect]
     Indication: FIBROMYALGIA
     Dosage: SEE IMAGE
     Route: 048
     Dates: start: 20070101, end: 20070918
  2. XYREM [Suspect]
     Indication: FIBROMYALGIA
     Dosage: SEE IMAGE
     Route: 048
     Dates: start: 20080301
  3. XYREM [Suspect]
     Indication: FIBROMYALGIA
     Dosage: SEE IMAGE
     Route: 048
     Dates: start: 20081001
  4. DIAZEPAM [Concomitant]
  5. ALPRAZOLAM [Concomitant]
  6. AMITRIPTYLINE HCL [Concomitant]

REACTIONS (14)
  - ABDOMINAL PAIN UPPER [None]
  - ACNE [None]
  - ANXIETY [None]
  - ASTHENIA [None]
  - BLOOD PRESSURE ABNORMAL [None]
  - DARK CIRCLES UNDER EYES [None]
  - DEHYDRATION [None]
  - DISTURBANCE IN ATTENTION [None]
  - HYPERHIDROSIS [None]
  - MALAISE [None]
  - NAUSEA [None]
  - PALPITATIONS [None]
  - RASH ERYTHEMATOUS [None]
  - SWELLING FACE [None]
